FAERS Safety Report 4654460-1 (Version None)
Quarter: 2005Q2

REPORT INFORMATION
  Report Type: 
  Country: None (occurrence: None)
  Receive Date: 20050404
  Receipt Date: 20050106
  Transmission Date: 20051028
  Serious: No
  Sender: FDA-Public Use
  Company Number: USA050187685

PATIENT
  Age: 45 Year
  Sex: Female
  Weight: 91 kg

DRUGS (5)
  1. CYMBALTA [Suspect]
     Indication: BIPOLAR I DISORDER
     Dosage: 80 MG DAY
     Dates: start: 20041101
  2. EFFEXOR [Concomitant]
  3. NEURONTIN (GABAPENTIN PFIZER) [Concomitant]
  4. LAMICTAL [Concomitant]
  5. XANAX (APRAZOLAM DUM) [Concomitant]

REACTIONS (5)
  - ANOREXIA [None]
  - DEPRESSED MOOD [None]
  - DRUG INEFFECTIVE [None]
  - DRY MOUTH [None]
  - PRESCRIBED OVERDOSE [None]
